FAERS Safety Report 5909153-7 (Version None)
Quarter: 2008Q4

REPORT INFORMATION
  Report Type: 
  Country: None (occurrence: None)
  Receive Date: 20081001
  Receipt Date: 20080915
  Transmission Date: 20090506
  Serious: Yes (Hospitalization)
  Sender: FDA-Public Use
  Company Number: 20278

PATIENT
  Age: 37 Year
  Sex: Female

DRUGS (1)
  1. ANZATAX [Suspect]
     Indication: CERVIX CARCINOMA
     Dosage: 175 MG/M2 IV
     Route: 042
     Dates: start: 20080911, end: 20080911

REACTIONS (6)
  - BRONCHOSPASM [None]
  - CHEST DISCOMFORT [None]
  - CYANOSIS [None]
  - DYSPNOEA [None]
  - HYPERHIDROSIS [None]
  - HYPOTENSION [None]
